FAERS Safety Report 7670250-X (Version None)
Quarter: 2011Q3

REPORT INFORMATION
  Report Type: 
  Country: None (occurrence: None)
  Receive Date: 20110809
  Receipt Date: 20110801
  Transmission Date: 20111222
  Serious: Yes (Hospitalization)
  Sender: FDA-Public Use
  Company Number: US-BRISTOL-MYERS SQUIBB COMPANY-15938947

PATIENT
  Age: 17 Year
  Sex: Male

DRUGS (5)
  1. CEPHALEXIN [Suspect]
     Indication: DERMATITIS CONTACT
  2. HEPARIN SODIUM [Suspect]
  3. ISOTRETINOIN [Suspect]
  4. PREDNISONE [Suspect]
     Indication: DERMATITIS CONTACT
  5. WARFARIN SODIUM [Suspect]

REACTIONS (5)
  - HEPARIN-INDUCED THROMBOCYTOPENIA [None]
  - PULMONARY EMBOLISM [None]
  - EMBOLISM VENOUS [None]
  - MAY-THURNER SYNDROME [None]
  - DRUG INEFFECTIVE [None]
